FAERS Safety Report 8576650-8 (Version None)
Quarter: 2012Q3

REPORT INFORMATION
  Report Type: 
  Country: None (occurrence: None)
  Receive Date: 20120807
  Receipt Date: 20120731
  Transmission Date: 20120928
  Serious: Yes (Life-Threatening, Hospitalization)
  Sender: FDA-Public Use
  Company Number: CA-JNJFOC-20120801229

PATIENT
  Sex: Female
  Weight: 2.9 kg

DRUGS (5)
  1. CODEINE SULFATE [Suspect]
     Indication: EXPOSURE DURING BREAST FEEDING
     Dosage: 2.1MG/KG
     Route: 063
  2. TYLENOL W/ CODEINE [Suspect]
     Indication: EXPOSURE DURING BREAST FEEDING
     Route: 063
  3. ACETAMINOPHEN [Suspect]
     Indication: EXPOSURE DURING BREAST FEEDING
     Route: 063
  4. IBUPROFEN [Suspect]
     Indication: EXPOSURE DURING BREAST FEEDING
     Route: 063
  5. OXYCODONE HCL [Suspect]
     Indication: EXPOSURE DURING BREAST FEEDING
     Dosage: EVERY 4 HOURSFOR 2 DAYS, AND EVERY 6 HOURS FOR A SUBSEQUENT 2 DAYS
     Route: 063

REACTIONS (3)
  - BREAST FEEDING [None]
  - LETHARGY [None]
  - RESPIRATORY ARREST [None]
